FAERS Safety Report 20867768 (Version 5)
Quarter: 2023Q2

REPORT INFORMATION
  Report Type: Spontaneous
  Country: US (occurrence: US)
  Receive Date: 20220524
  Receipt Date: 20230606
  Transmission Date: 20230722
  Serious: Yes (Other)
  Sender: FDA-Public Use
  Company Number: US-PFIZER INC-202200744372

PATIENT
  Age: 77 Year
  Sex: Female

DRUGS (3)
  1. BOSULIF [Suspect]
     Active Substance: BOSUTINIB MONOHYDRATE
     Dosage: 100 MG, DAILY (2 TABLETS DAILY/TAKE 2 TABLETS BY MOUTH WITH FOOD)
     Route: 048
  2. BOSULIF [Suspect]
     Active Substance: BOSUTINIB MONOHYDRATE
     Dosage: 400 MG (2 OF THE 400MG )
  3. BOSULIF [Suspect]
     Active Substance: BOSUTINIB MONOHYDRATE
     Dosage: 400 MG (TABLET TAKE 1 TABLET BY MOUTH EVERY DAY)
     Route: 048

REACTIONS (9)
  - Near death experience [Unknown]
  - Diarrhoea [Not Recovered/Not Resolved]
  - Parkinson^s disease [Unknown]
  - Product dispensing error [Unknown]
  - Incorrect dose administered [Unknown]
  - Accidental overdose [Unknown]
  - Illness [Unknown]
  - Fatigue [Unknown]
  - Asthenia [Unknown]
